FAERS Safety Report 4321129-2 (Version None)
Quarter: 2004Q1

REPORT INFORMATION
  Report Type: 
  Country: None (occurrence: None)
  Receive Date: 20040322
  Receipt Date: 20040310
  Transmission Date: 20041129
  Serious: Yes (Other)
  Sender: FDA-Public Use
  Company Number: GB-GLAXOSMITHKLINE-B0326504A

PATIENT
  Age: 71 Year
  Sex: Male
  Weight: 81.2 kg

DRUGS (4)
  1. AVODART [Suspect]
     Route: 048
     Dates: start: 20040202, end: 20040308
  2. TAMSULOSIN HYDROCHLORIDE [Concomitant]
     Route: 065
     Dates: start: 20020821
  3. BISACODYL [Concomitant]
     Route: 065
  4. NORFLOXACIN [Concomitant]
     Route: 065
     Dates: end: 20040119

REACTIONS (1)
  - WHEEZING [None]
